FAERS Safety Report 6635627-X (Version None)
Quarter: 2010Q1

REPORT INFORMATION
  Report Type: 
  Country: None (occurrence: None)
  Receive Date: 20100312
  Receipt Date: 20100312
  Transmission Date: 20100710
  Serious: Yes (Hospitalization)
  Sender: FDA-Public Use
  Company Number: None

PATIENT
  Age: 62 Year
  Sex: Male
  Weight: 92.0802 kg

DRUGS (5)
  1. 5FU M -} FR [Suspect]
     Indication: OESOPHAGEAL CARCINOMA
     Dosage: IV WEEKLY
     Dates: start: 20100118, end: 20100219
  2. TAXOL [Suspect]
  3. CARBOPLATIN [Suspect]
  4. ZACTIMA - DAILY [Suspect]
     Dosage: PO DAILY
     Route: 048
     Dates: start: 20100118
  5. RADIATION [Concomitant]

REACTIONS (3)
  - COLITIS [None]
  - DEHYDRATION [None]
  - DIARRHOEA [None]
